FAERS Safety Report 4690473-1 (Version None)
Quarter: 2005Q2

REPORT INFORMATION
  Report Type: 
  Country: None (occurrence: None)
  Receive Date: 20050614
  Receipt Date: 20050614
  Transmission Date: 20051028
  Serious: Yes (Life-Threatening, Hospitalization)
  Sender: FDA-Public Use
  Company Number: None

PATIENT
  Age: 43 Year
  Sex: Female
  Weight: 77.1115 kg

DRUGS (1)
  1. YASMIN [Suspect]
     Dosage: 1 DAY ORAL
     Route: 048
     Dates: start: 20030730, end: 20050610

REACTIONS (1)
  - MYOCARDIAL INFARCTION [None]
